FAERS Safety Report 18072363 (Version 1)
Quarter: 2020Q3

REPORT INFORMATION
  Report Type: Spontaneous
  Country: US (occurrence: US)
  Receive Date: 20200724
  Receipt Date: 20200724
  Transmission Date: 20201103
  Serious: Yes (Hospitalization)
  Sender: FDA-Public Use
  Company Number: None

PATIENT
  Age: 71 Year
  Sex: Female

DRUGS (6)
  1. FERROUS SULFATE. [Concomitant]
     Active Substance: FERROUS SULFATE
  2. ROSUVASTATIN. [Concomitant]
     Active Substance: ROSUVASTATIN
  3. ALBUTEROL. [Concomitant]
     Active Substance: ALBUTEROL
  4. ALPRAZOLAM. [Concomitant]
     Active Substance: ALPRAZOLAM
  5. IBRANCE [Suspect]
     Active Substance: PALBOCICLIB
     Indication: BREAST CANCER FEMALE
     Dosage: 100MG DAILY FOR 2 DAYS , 7 DAYS OFF EA 28 DAY CYCLE BY MOUTH
     Route: 048
  6. OXYCODONE [Concomitant]
     Active Substance: OXYCODONE

REACTIONS (1)
  - Therapy interrupted [None]
